FAERS Safety Report 22354310 (Version 2)
Quarter: 2023Q2

REPORT INFORMATION
  Report Type: Spontaneous
  Country: CO (occurrence: CO)
  Receive Date: 20230523
  Receipt Date: 20230612
  Transmission Date: 20230722
  Serious: Yes (Death, Life-Threatening, Hospitalization, Other)
  Sender: FDA-Public Use
  Company Number: None

PATIENT
  Age: 64 Year
  Sex: Male

DRUGS (1)
  1. PREDNISOLONE [Suspect]
     Active Substance: PREDNISOLONE
     Indication: Immunosuppressant drug therapy
     Dosage: 60 MILLIGRAM, QD
     Route: 065

REACTIONS (13)
  - Dementia [Fatal]
  - Disease progression [Fatal]
  - Pneumonia cryptococcal [Fatal]
  - Meningitis cryptococcal [Fatal]
  - Intracranial pressure increased [Fatal]
  - Cryptococcosis [Fatal]
  - Cardiac arrest [Fatal]
  - Social problem [Unknown]
  - Consciousness fluctuating [Unknown]
  - Loss of personal independence in daily activities [Unknown]
  - Delirium [Unknown]
  - Hallucination, visual [Unknown]
  - Hallucination, auditory [Unknown]
